FAERS Safety Report 8277612-0 (Version None)
Quarter: 2012Q1

REPORT INFORMATION
  Report Type: 
  Country: None (occurrence: None)
  Receive Date: 20120312
  Receipt Date: 20120117
  Transmission Date: 20120608
  Serious: No
  Sender: FDA-Public Use
  Company Number: 2012SP003548

PATIENT

DRUGS (2)
  1. SAPHRIS [Suspect]
     Indication: BIPOLAR DISORDER
  2. SAPHRIS [Suspect]
     Indication: SCHIZOPHRENIA

REACTIONS (1)
  - NAUSEA [None]
